FAERS Safety Report 12524159 (Version 1)
Quarter: 2016Q3

REPORT INFORMATION
  Report Type: Spontaneous
  Country: US (occurrence: US)
  Receive Date: 20160704
  Receipt Date: 20160704
  Transmission Date: 20161109
  Serious: Yes (Hospitalization)
  Sender: FDA-Public Use
  Company Number: US-ROCHE-1785058

PATIENT
  Sex: Female

DRUGS (1)
  1. XOLAIR [Suspect]
     Active Substance: OMALIZUMAB
     Indication: CHRONIC SPONTANEOUS URTICARIA
     Route: 058
     Dates: start: 20140405

REACTIONS (5)
  - Spinal operation [Recovered/Resolved]
  - Urticaria [Unknown]
  - Pruritus [Unknown]
  - Headache [Unknown]
  - Chronic spontaneous urticaria [Unknown]
